FAERS Safety Report 22180912 (Version 1)
Quarter: 2023Q2

REPORT INFORMATION
  Report Type: Report from Study
  Country: DE (occurrence: DE)
  Receive Date: 20230406
  Receipt Date: 20230406
  Transmission Date: 20230722
  Serious: Yes (Hospitalization, Other)
  Sender: FDA-Public Use
  Company Number: DE-ABBVIE-4712244

PATIENT
  Age: 48 Year
  Sex: Male
  Weight: 114 kg

DRUGS (1)
  1. HUMIRA [Suspect]
     Active Substance: ADALIMUMAB
     Indication: Crohn^s disease
     Route: 058
     Dates: start: 20230123

REACTIONS (6)
  - Circulatory collapse [Recovered/Resolved]
  - Pulmonary embolism [Recovered/Resolved with Sequelae]
  - Fall [Not Recovered/Not Resolved]
  - Renal failure [Not Recovered/Not Resolved]
  - Inflammation [Recovered/Resolved]
  - Skin wound [Not Recovered/Not Resolved]

NARRATIVE: CASE EVENT DATE: 20230201
